FAERS Safety Report 14364172 (Version 2)
Quarter: 2018Q1

REPORT INFORMATION
  Report Type: Spontaneous
  Country: SE (occurrence: SE)
  Receive Date: 20180108
  Receipt Date: 20180302
  Transmission Date: 20180509
  Serious: Yes (Other)
  Sender: FDA-Public Use
  Company Number: SE-PFIZER INC-2018004368

PATIENT
  Age: 75 Year
  Sex: Female

DRUGS (1)
  1. OESTRING [Suspect]
     Active Substance: ESTRADIOL
     Dosage: UNK
     Dates: start: 201705

REACTIONS (3)
  - Cystitis-like symptom [Recovering/Resolving]
  - Vulvovaginal pain [Recovered/Resolved]
  - Vulvovaginal injury [Recovered/Resolved]
